FAERS Safety Report 8912346 (Version 14)
Quarter: 2013Q4

REPORT INFORMATION
  Report Type: Spontaneous
  Country: JP (occurrence: JP)
  Receive Date: 20121116
  Receipt Date: 20131217
  Transmission Date: 20140711
  Serious: Yes (Hospitalization, Other)
  Sender: FDA-Public Use
  Company Number: JP-CELGENEUS-087-21880-12111506

PATIENT
  Age: 77 Year
  Sex: Male
  Weight: 68.5 kg

DRUGS (56)
  1. REVLIMID [Suspect]
     Indication: PLASMA CELL MYELOMA
     Dosage: 10 MILLIGRAM
     Route: 048
     Dates: start: 20120131, end: 20121022
  2. REVLIMID [Suspect]
     Dosage: UNKNOWN
     Route: 048
     Dates: start: 20130328
  3. LENADEX [Suspect]
     Indication: PLASMA CELL MYELOMA
     Route: 065
     Dates: start: 20130328
  4. LENADEX [Suspect]
     Dosage: 28 MILLIGRAM
     Route: 048
     Dates: start: 20120131, end: 20130226
  5. ELOTUZUMAB [Suspect]
     Indication: PLASMA CELL MYELOMA
     Dosage: 10 MILLIGRAM/KILOGRAM
     Route: 041
     Dates: start: 20120131, end: 20130226
  6. DEXAMETHASONE [Suspect]
     Indication: PLASMA CELL MYELOMA
     Dosage: 8 MILLIGRAM
     Route: 041
     Dates: start: 20120131, end: 20130226
  7. AZOSEMIDE [Concomitant]
     Indication: ADVERSE EVENT
     Route: 065
     Dates: start: 20120926, end: 20121106
  8. FUROSEMIDE [Concomitant]
     Indication: ADVERSE EVENT
     Route: 065
     Dates: start: 20120808, end: 20130311
  9. ASPIRIN [Concomitant]
     Indication: PRODUCT USED FOR UNKNOWN INDICATION
     Route: 065
     Dates: start: 20120131
  10. BAKTAR [Concomitant]
     Indication: PRODUCT USED FOR UNKNOWN INDICATION
     Route: 065
     Dates: start: 20120131
  11. LANSOPRAZOLE [Concomitant]
     Indication: PRODUCT USED FOR UNKNOWN INDICATION
     Route: 065
     Dates: start: 20120131
  12. ISOSORBIDE DINITRATE [Concomitant]
     Indication: PRODUCT USED FOR UNKNOWN INDICATION
     Route: 065
     Dates: start: 20120131
  13. MICAMLO COMBINATION [Concomitant]
     Indication: PRODUCT USED FOR UNKNOWN INDICATION
     Route: 065
     Dates: start: 20120131
  14. KETOPROFEN [Concomitant]
     Indication: PRODUCT USED FOR UNKNOWN INDICATION
     Route: 065
     Dates: start: 2009
  15. TRAPIDIL [Concomitant]
     Indication: PRODUCT USED FOR UNKNOWN INDICATION
     Route: 065
     Dates: start: 20040907
  16. NICERGORINE [Concomitant]
     Indication: PRODUCT USED FOR UNKNOWN INDICATION
     Route: 065
     Dates: start: 20040907
  17. FLUOROMETHOLONE [Concomitant]
     Indication: PRODUCT USED FOR UNKNOWN INDICATION
     Route: 065
     Dates: start: 2004, end: 20120229
  18. FLUOROMETHOLONE [Concomitant]
     Route: 065
     Dates: start: 20121220, end: 20130131
  19. PIRENOXINE [Concomitant]
     Indication: PRODUCT USED FOR UNKNOWN INDICATION
     Route: 065
     Dates: start: 2004, end: 20130131
  20. PYDOXAL [Concomitant]
     Indication: ANAEMIA
     Route: 065
     Dates: start: 20130116
  21. CALONAL [Concomitant]
     Indication: NASOPHARYNGITIS
     Route: 048
  22. CALONAL [Concomitant]
     Indication: PYREXIA
     Route: 048
  23. CALONAL [Concomitant]
     Indication: PYREXIA
     Route: 048
  24. CALONAL [Concomitant]
     Route: 048
     Dates: start: 20130302
  25. SENNOSIDE [Concomitant]
     Indication: ADVERSE EVENT
     Route: 065
     Dates: start: 20130305
  26. MOXIFLOXACIN HYDROCHLORIDE [Concomitant]
     Indication: PRODUCT USED FOR UNKNOWN INDICATION
     Route: 065
     Dates: start: 20130227
  27. LEVOFLOXACIN HYDRATE [Concomitant]
     Indication: ADVERSE EVENT
     Route: 065
     Dates: start: 20121220, end: 20130131
  28. LEVOFLOXACIN HYDRATE [Concomitant]
     Route: 065
     Dates: start: 20130401, end: 20130403
  29. LEVOFLOXACIN HYDRATE [Concomitant]
     Route: 065
     Dates: start: 20130502, end: 20130515
  30. SODIUM BICARBONATE [Concomitant]
     Indication: PRODUCT USED FOR UNKNOWN INDICATION
     Route: 065
     Dates: start: 20130327, end: 20130405
  31. TERBINAFINE HYDROCHLORIDE [Concomitant]
     Indication: PRODUCT USED FOR UNKNOWN INDICATION
     Route: 065
     Dates: start: 2007
  32. SULFADIAZINE [Concomitant]
     Indication: PRODUCT USED FOR UNKNOWN INDICATION
     Route: 065
     Dates: start: 2007
  33. VALACYCLOVIR HYDROCHLORIDE [Concomitant]
     Indication: PRODUCT USED FOR UNKNOWN INDICATION
     Route: 065
     Dates: start: 20130407, end: 20130411
  34. VALACYCLOVIR HYDROCHLORIDE [Concomitant]
     Route: 065
     Dates: start: 20130426, end: 20130430
  35. DIPHENHYDRAMINE [Concomitant]
     Indication: ADVERSE EVENT
     Route: 065
     Dates: start: 20130402, end: 20130408
  36. TRAMADOL HYDROCHLORIDE [Concomitant]
     Indication: ADVERSE EVENT
     Route: 065
     Dates: start: 20130330
  37. DICLOFENAC SODIUM [Concomitant]
     Indication: ADVERSE EVENT
     Route: 065
     Dates: start: 20130330, end: 20130330
  38. PENTAZOCINE HYDROCHLORIDE [Concomitant]
     Indication: ADVERSE EVENT
     Route: 065
     Dates: start: 20130330, end: 20130330
  39. CLARITHROMYCIN [Concomitant]
     Indication: PRODUCT USED FOR UNKNOWN INDICATION
     Route: 065
     Dates: start: 20130413
  40. POVIDONE IODINE [Concomitant]
     Indication: PRODUCT USED FOR UNKNOWN INDICATION
     Route: 065
     Dates: start: 20130417
  41. FOLIAMIN [Concomitant]
     Indication: ANAEMIA
     Route: 065
     Dates: start: 20130129
  42. RED BLOOD CELLS [Concomitant]
     Indication: ANAEMIA
     Dosage: 2 UNITS
     Route: 041
     Dates: start: 20130311, end: 20130311
  43. SARPOGRELATE HYDROCHLORIDE [Concomitant]
     Indication: PRODUCT USED FOR UNKNOWN INDICATION
     Route: 065
     Dates: start: 20040907, end: 20120130
  44. NITROGLYCERIN [Concomitant]
     Indication: PRODUCT USED FOR UNKNOWN INDICATION
     Route: 065
     Dates: start: 20040907, end: 20120130
  45. NIFEDIPINE [Concomitant]
     Indication: PRODUCT USED FOR UNKNOWN INDICATION
     Route: 065
     Dates: start: 20040907, end: 20120130
  46. CLINDAMYCIN HYDROCHLORIDE [Concomitant]
     Indication: PRODUCT USED FOR UNKNOWN INDICATION
     Route: 065
     Dates: start: 20110524, end: 20120626
  47. METOCLOPRAMIDE [Concomitant]
     Indication: ADVERSE EVENT
     Route: 065
     Dates: start: 20120208, end: 20120229
  48. HYALURONATE SODIUM [Concomitant]
     Indication: ADVERSE EVENT
     Route: 065
     Dates: start: 20120213, end: 20120229
  49. LACB [Concomitant]
     Indication: PRODUCT USED FOR UNKNOWN INDICATION
     Route: 065
     Dates: start: 20120823, end: 20120903
  50. CEFCAPENE PIVOXIL HYDROCHLORIDE [Concomitant]
     Indication: ADVERSE EVENT
     Route: 065
     Dates: start: 20130115
  51. FOLIC ACID [Concomitant]
     Indication: ADVERSE EVENT
     Route: 065
     Dates: start: 20130129
  52. OLOPATADINE HYDROCHLORIDE [Concomitant]
     Indication: ADVERSE EVENT
     Route: 065
     Dates: start: 20130403
  53. SHAKUYAKUKANZOUTOU [Concomitant]
     Indication: ADVERSE EVENT
     Route: 065
     Dates: start: 20130502
  54. BETAMETHASONE SODIUM PHOSPHATE [Concomitant]
     Indication: ADVERSE EVENT
     Route: 065
     Dates: start: 20130506
  55. MEROPENEM HYDRATE [Concomitant]
     Indication: PRODUCT USED FOR UNKNOWN INDICATION
     Route: 065
     Dates: start: 20130311, end: 20130318
  56. FLUCONAZOLE [Concomitant]
     Indication: PRODUCT USED FOR UNKNOWN INDICATION
     Route: 065
     Dates: start: 20130131, end: 20130311

REACTIONS (3)
  - Myelodysplastic syndrome [Not Recovered/Not Resolved]
  - Pneumonia [Recovered/Resolved]
  - Cataract [Recovered/Resolved]
